FAERS Safety Report 5275872-1 (Version None)
Quarter: 2007Q1

REPORT INFORMATION
  Report Type: 
  Country: None (occurrence: None)
  Receive Date: 20061213
  Receipt Date: 20041028
  Transmission Date: 20070707
  Serious: Yes (Hospitalization)
  Sender: FDA-Public Use
  Company Number: 2004UW22249

PATIENT
  Age: 40 Year
  Sex: Female
  Weight: 82.7 kg

DRUGS (5)
  1. SEROQUEL [Suspect]
     Indication: SCHIZOPHRENIA
     Dosage: 2 DF BID PO
     Route: 048
     Dates: start: 20040729, end: 20040811
  2. SEROQUEL [Suspect]
     Indication: SCHIZOPHRENIA
     Dates: start: 20040816, end: 20040818
  3. SEROQUEL [Suspect]
     Indication: SCHIZOPHRENIA
     Dosage: 400 MG PO
     Route: 048
     Dates: start: 20040819
  4. METFORMIN HYDROCHLORIDE [Concomitant]
  5. LORAZEPAM [Concomitant]

REACTIONS (1)
  - SINUS TACHYCARDIA [None]
